FAERS Safety Report 5410399-5 (Version None)
Quarter: 2007Q3

REPORT INFORMATION
  Report Type: 
  Country: None (occurrence: None)
  Receive Date: 20070713
  Receipt Date: 20070529
  Transmission Date: 20080115
  Serious: No
  Sender: FDA-Public Use
  Company Number: 2007PSP002001

PATIENT
  Age: 38 Year
  Sex: Female

DRUGS (1)
  1. LUNESTA [Suspect]
     Dosage: 1 MG;ORAL ; 1 MG;ORAL
     Route: 048

REACTIONS (3)
  - DRUG INEFFECTIVE [None]
  - DYSGEUSIA [None]
  - INSOMNIA [None]
